FAERS Safety Report 4927490-X (Version None)
Quarter: 2006Q1

REPORT INFORMATION
  Report Type: 
  Country: None (occurrence: None)
  Receive Date: 20060228
  Receipt Date: 20050422
  Transmission Date: 20060701
  Serious: Yes (Death, Other)
  Sender: FDA-Public Use
  Company Number: US-MERCK-0504USA04464

PATIENT
  Age: 28 Year
  Sex: Male

DRUGS (1)
  1. VIOXX [Suspect]
     Route: 048

REACTIONS (6)
  - ANOXIC ENCEPHALOPATHY [None]
  - CARDIO-RESPIRATORY ARREST [None]
  - DUCHENNE MUSCULAR DYSTROPHY [None]
  - MYOCARDIAL INFARCTION [None]
  - NON-CARDIOGENIC PULMONARY OEDEMA [None]
  - PULMONARY OEDEMA [None]
